FAERS Safety Report 7974090-3 (Version None)
Quarter: 2011Q4

REPORT INFORMATION
  Report Type: 
  Country: None (occurrence: None)
  Receive Date: 20111213
  Receipt Date: 20111206
  Transmission Date: 20120403
  Serious: Yes (Death, Other)
  Sender: FDA-Public Use
  Company Number: FR-UCBSA-047286

PATIENT
  Age: 73 Year
  Sex: Female

DRUGS (5)
  1. DEPAKENE [Concomitant]
     Dosage: 1800 MG BY INTRAVENOUS WITH ELECTRICAL SYRINGE
     Route: 042
  2. CLONAZEPAM [Concomitant]
     Dosage: HALF AMPOULE DAILY WITH ELECTRICAL SYRINGE
     Route: 042
  3. ZONEGRAN [Concomitant]
     Dosage: ONE UNIT X 2
  4. KEPPRA [Suspect]
     Route: 042
     Dates: start: 20110822, end: 20110908
  5. VALPROIC ACID [Concomitant]
     Route: 048

REACTIONS (2)
  - THROMBOCYTOPENIA [None]
  - ESCHERICHIA INFECTION [None]
